FAERS Safety Report 16702352 (Version 1)
Quarter: 2019Q3

REPORT INFORMATION
  Report Type: Spontaneous
  Country: US (occurrence: US)
  Receive Date: 20190813
  Receipt Date: 20190813
  Transmission Date: 20191004
  Serious: Yes (Death)
  Sender: FDA-Public Use
  Company Number: None

PATIENT
  Age: 62 Year
  Sex: Male

DRUGS (2)
  1. CYCLOSPORINE MODIFIED [Suspect]
     Active Substance: CYCLOSPORINE
     Indication: LIVER TRANSPLANT
     Dosage: ?          OTHER ROUTE:JEJUNOSTOMY TUBE 0.75 MORNING 0.50ML EVE?
     Dates: start: 20190118
  2. CYCLOSPORINE MODIFIED [Suspect]
     Active Substance: CYCLOSPORINE
     Indication: RENAL TRANSPLANT
     Dosage: ?          OTHER ROUTE:JEJUNOSTOMY TUBE 0.75 MORNING 0.50ML EVE?
     Dates: start: 20190118

REACTIONS (1)
  - Death [None]

NARRATIVE: CASE EVENT DATE: 20190626
